FAERS Safety Report 17487575 (Version 1)
Quarter: 2020Q1

REPORT INFORMATION
  Report Type: Spontaneous
  Country: US (occurrence: US)
  Receive Date: 20200219
  Receipt Date: 20200219
  Transmission Date: 20200409
  Serious: Yes (Life-Threatening, Hospitalization, Other)
  Sender: FDA-Public Use
  Company Number: None

PATIENT
  Age: 60 Year
  Sex: Female
  Weight: 90.72 kg

DRUGS (7)
  1. CALCIUM WITH VIT D [Concomitant]
  2. PRENATAL VITAMINS WITH IRON [Concomitant]
  3. GABAPENTIN. [Concomitant]
     Active Substance: GABAPENTIN
  4. OXYCODONE [Concomitant]
     Active Substance: OXYCODONE
  5. FLEXARIL [Concomitant]
  6. MELATONIN [Concomitant]
     Active Substance: MELATONIN
  7. XARELTO [Suspect]
     Active Substance: RIVAROXABAN
     Indication: THROMBOSIS PROPHYLAXIS
     Dosage: ?          QUANTITY:1 DF DOSAGE FORM;?
     Route: 048
     Dates: start: 20191231, end: 20200106

REACTIONS (2)
  - Haemorrhage [None]
  - Thrombosis [None]

NARRATIVE: CASE EVENT DATE: 20200107
